FAERS Safety Report 17081895 (Version 2)
Quarter: 2020Q1

REPORT INFORMATION
  Report Type: Spontaneous
  Country: ES (occurrence: ES)
  Receive Date: 20191127
  Receipt Date: 20200107
  Transmission Date: 20200409
  Serious: No
  Sender: FDA-Public Use
  Company Number: ES-009507513-1911ESP006493

PATIENT
  Age: 37 Year
  Sex: Male

DRUGS (2)
  1. NASONEX [Suspect]
     Active Substance: MOMETASONE FUROATE
     Indication: PAROSMIA
     Dosage: UNK
     Route: 045
     Dates: start: 201909
  2. NASONEX [Suspect]
     Active Substance: MOMETASONE FUROATE
     Dosage: 2 PUFFS OF NASONEX IN EACH NOSTRIL
     Route: 045
     Dates: start: 20191113, end: 20191113

REACTIONS (5)
  - Dyspnoea [Not Recovered/Not Resolved]
  - Incorrect dose administered by device [Unknown]
  - Product prescribing issue [Unknown]
  - Product use in unapproved indication [Unknown]
  - Product administration error [Unknown]

NARRATIVE: CASE EVENT DATE: 201909
